FAERS Safety Report 10047526 (Version 1)
Quarter: 2014Q1

REPORT INFORMATION
  Report Type: Spontaneous
  Country: CH (occurrence: CH)
  Receive Date: 20140331
  Receipt Date: 20140331
  Transmission Date: 20141002
  Serious: Yes (Hospitalization)
  Sender: FDA-Public Use
  Company Number: CH-JNJFOC-20140312944

PATIENT
  Age: 14 Year
  Sex: Female

DRUGS (3)
  1. RISPERDAL [Suspect]
     Indication: AUTISM SPECTRUM DISORDER
     Dosage: 0.25 MG B.I.D. + 0.25 MG B.I.D. AS NEEDED.
     Route: 048
     Dates: start: 20140115, end: 20140225
  2. RISPERDAL [Suspect]
     Indication: AUTISM SPECTRUM DISORDER
     Dosage: 0.5-0-1
     Route: 048
     Dates: start: 20140226, end: 20140301
  3. PRAZINE [Suspect]
     Indication: PRODUCT USED FOR UNKNOWN INDICATION
     Route: 048
     Dates: start: 20140228, end: 20140228

REACTIONS (6)
  - Neuroleptic malignant syndrome [Recovered/Resolved]
  - Confusional state [Recovered/Resolved]
  - Agitation [Recovered/Resolved]
  - Pyrexia [Recovered/Resolved]
  - Muscle rigidity [Recovered/Resolved]
  - Hyperreflexia [Recovered/Resolved]
